FAERS Safety Report 18214554 (Version 1)
Quarter: 2020Q3

REPORT INFORMATION
  Report Type: Spontaneous
  Country: CA (occurrence: CA)
  Receive Date: 20200831
  Receipt Date: 20200831
  Transmission Date: 20201103
  Serious: Yes (Other)
  Sender: FDA-Public Use
  Company Number: CA-TEVA-2020-CA-1819689

PATIENT
  Sex: Female

DRUGS (10)
  1. FLUVASTATIN [Concomitant]
     Active Substance: FLUVASTATIN SODIUM
  2. ANASTROZOLE. [Suspect]
     Active Substance: ANASTROZOLE
     Indication: PRODUCT USED FOR UNKNOWN INDICATION
     Route: 048
  3. CELEBREX [Concomitant]
     Active Substance: CELECOXIB
  4. SYNTHROID [Concomitant]
     Active Substance: LEVOTHYROXINE SODIUM
  5. METFORMIN [Concomitant]
     Active Substance: METFORMIN HYDROCHLORIDE
  6. STATEX [Concomitant]
  7. ASA [Concomitant]
     Active Substance: ASPIRIN
  8. DICETEL [Concomitant]
     Active Substance: PINAVERIUM BROMIDE
  9. HCTZ [Concomitant]
     Active Substance: HYDROCHLOROTHIAZIDE
  10. IMOVANE [Concomitant]
     Active Substance: ZOPICLONE

REACTIONS (2)
  - Anxiety [Unknown]
  - Malignant neoplasm progression [Unknown]
